FAERS Safety Report 18671132 (Version 6)
Quarter: 2022Q1

REPORT INFORMATION
  Report Type: Report from Study
  Country: NO (occurrence: NO)
  Receive Date: 20201228
  Receipt Date: 20220122
  Transmission Date: 20220423
  Serious: Yes (Hospitalization, Other)
  Sender: FDA-Public Use
  Company Number: NO-TAKEDA-NO201841393

PATIENT
  Age: 4 Year
  Sex: Female
  Weight: 12 kg

DRUGS (24)
  1. TEDUGLUTIDE [Suspect]
     Active Substance: TEDUGLUTIDE
     Indication: Short-bowel syndrome
     Dosage: 0.5 MG (0.5 MG/KG), 7 DOSES PER WEEK
     Route: 065
     Dates: start: 20170208, end: 20170925
  2. TEDUGLUTIDE [Suspect]
     Active Substance: TEDUGLUTIDE
     Indication: Short-bowel syndrome
     Dosage: 0.5 MG (0.5 MG/KG), 7 DOSES PER WEEK
     Route: 065
     Dates: start: 20170208, end: 20170925
  3. TEDUGLUTIDE [Suspect]
     Active Substance: TEDUGLUTIDE
     Indication: Short-bowel syndrome
     Dosage: 0.5 MG (0.5 MG/KG), 7 DOSES PER WEEK
     Route: 065
     Dates: start: 20170208, end: 20170925
  4. TEDUGLUTIDE [Suspect]
     Active Substance: TEDUGLUTIDE
     Indication: Short-bowel syndrome
     Dosage: 0.5 MG (0.5 MG/KG), 7 DOSES PER WEEK
     Route: 065
     Dates: start: 20170208, end: 20170925
  5. TEDUGLUTIDE [Suspect]
     Active Substance: TEDUGLUTIDE
     Dosage: 0.5 MG (0.05 MG/KG), 7 DOSES PER WEEK
     Route: 065
     Dates: start: 20180106, end: 20190916
  6. TEDUGLUTIDE [Suspect]
     Active Substance: TEDUGLUTIDE
     Dosage: 0.5 MG (0.05 MG/KG), 7 DOSES PER WEEK
     Route: 065
     Dates: start: 20180106, end: 20190916
  7. TEDUGLUTIDE [Suspect]
     Active Substance: TEDUGLUTIDE
     Dosage: 0.5 MG (0.05 MG/KG), 7 DOSES PER WEEK
     Route: 065
     Dates: start: 20180106, end: 20190916
  8. TEDUGLUTIDE [Suspect]
     Active Substance: TEDUGLUTIDE
     Dosage: 0.5 MG (0.05 MG/KG), 7 DOSES PER WEEK
     Route: 065
     Dates: start: 20180106, end: 20190916
  9. TEDUGLUTIDE [Suspect]
     Active Substance: TEDUGLUTIDE
     Dosage: 0.75 MILLIGRAM, QD
     Route: 065
     Dates: start: 20190917
  10. TEDUGLUTIDE [Suspect]
     Active Substance: TEDUGLUTIDE
     Dosage: 0.75 MILLIGRAM, QD
     Route: 065
     Dates: start: 20190917
  11. TEDUGLUTIDE [Suspect]
     Active Substance: TEDUGLUTIDE
     Dosage: 0.75 MILLIGRAM, QD
     Route: 065
     Dates: start: 20190917
  12. TEDUGLUTIDE [Suspect]
     Active Substance: TEDUGLUTIDE
     Dosage: 0.75 MILLIGRAM, QD
     Route: 065
     Dates: start: 20190917
  13. URSODIOL [Concomitant]
     Active Substance: URSODIOL
     Indication: Hepatic failure
  14. LOPERAMIDE [Concomitant]
     Active Substance: LOPERAMIDE
     Indication: Diarrhoea
  15. AMOKSICILLIN [Concomitant]
     Indication: Overgrowth bacterial
  16. RANITIDINE [Concomitant]
     Active Substance: RANITIDINE
     Indication: Secretion discharge
  17. ESOMEPRAZOLE [Concomitant]
     Active Substance: ESOMEPRAZOLE
     Indication: Gastric ulcer
     Dosage: 15 MILLIGRAM, BID
     Route: 048
     Dates: start: 20200213
  18. DICLOXACILLIN [Concomitant]
     Active Substance: DICLOXACILLIN
     Indication: Vascular device infection
     Dosage: 600 MILLIGRAM, QID
     Route: 042
     Dates: start: 20180518, end: 20180525
  19. CLOXACILLIN [Concomitant]
     Active Substance: CLOXACILLIN
     Indication: Infection
     Dosage: 600 MILLIGRAM, QID
     Route: 042
     Dates: start: 20180512, end: 20180515
  20. CLOXACILLIN [Concomitant]
     Active Substance: CLOXACILLIN
     Dosage: 400 MILLIGRAM, QID
     Route: 042
     Dates: start: 20200909, end: 20200915
  21. METRONIDAZOLE [Concomitant]
     Active Substance: METRONIDAZOLE
     Indication: Gastrointestinal bacterial overgrowth
     Dosage: 60 MILLIGRAM, TID
     Route: 048
     Dates: start: 20140410
  22. LEVOTHYROXINE SODIUM [Concomitant]
     Active Substance: LEVOTHYROXINE SODIUM
     Indication: Hypothyroidism
     Dosage: 25 MICROGRAM, QD
     Route: 048
     Dates: start: 20210630
  23. VANCOMYCIN [Concomitant]
     Active Substance: VANCOMYCIN
     Indication: Vascular device infection
     Dosage: 360 MILLIGRAM, BID
     Route: 042
     Dates: start: 20200915, end: 20200923
  24. LEVOTHYROXINE [Concomitant]
     Active Substance: LEVOTHYROXINE
     Indication: Hypothyroidism
     Dosage: 37.5 MICROGRAM, QD
     Route: 048
     Dates: start: 20210630

REACTIONS (4)
  - Catheter site infection [Recovered/Resolved]
  - Infection [Recovered/Resolved]
  - Excessive granulation tissue [Recovered/Resolved]
  - Upper respiratory tract infection [Recovered/Resolved]

NARRATIVE: CASE EVENT DATE: 20180513
